FAERS Safety Report 25654332 (Version 2)
Quarter: 2025Q3

REPORT INFORMATION
  Report Type: Spontaneous
  Country: EU (occurrence: EU)
  Receive Date: 20250807
  Receipt Date: 20250909
  Transmission Date: 20251021
  Serious: Yes (Hospitalization)
  Sender: JOHNSON AND JOHNSON
  Company Number: EU-JNJFOC-20250802781

PATIENT
  Age: 4 Year
  Sex: Male

DRUGS (4)
  1. VERMOX [Suspect]
     Active Substance: MEBENDAZOLE
     Indication: Helminthic infection
     Route: 065
     Dates: start: 20250716
  2. VERMOX [Suspect]
     Active Substance: MEBENDAZOLE
     Indication: Streptococcal infection
  3. AMOXIL [Suspect]
     Active Substance: AMOXICILLIN
     Indication: Streptococcal infection
     Route: 065
     Dates: start: 20250716
  4. AMOXIL [Suspect]
     Active Substance: AMOXICILLIN
     Indication: Helminthic infection
     Route: 065
     Dates: start: 20250712

REACTIONS (1)
  - Serum sickness [Recovering/Resolving]

NARRATIVE: CASE EVENT DATE: 20250701
